FAERS Safety Report 4576544-9 (Version None)
Quarter: 2005Q1

REPORT INFORMATION
  Report Type: 
  Country: None (occurrence: None)
  Receive Date: 20050119
  Receipt Date: 20040322
  Transmission Date: 20050727
  Serious: Yes (Hospitalization)
  Sender: FDA-Public Use
  Company Number: A03200400885

PATIENT
  Age: 51 Year
  Sex: Male

DRUGS (1)
  1. PLAVIX [Suspect]
     Indication: CORONARY ARTERY SURGERY
     Dosage: 75 MG QD - ORAL
     Route: 048
     Dates: start: 20040101, end: 20040101

REACTIONS (1)
  - ANGIONEUROTIC OEDEMA [None]
